FAERS Safety Report 8481165-1 (Version None)
Quarter: 2012Q3

REPORT INFORMATION
  Report Type: 
  Country: None (occurrence: None)
  Receive Date: 20120702
  Receipt Date: 20120627
  Transmission Date: 20120928
  Serious: Yes (Death, Hospitalization, Other)
  Sender: FDA-Public Use
  Company Number: PHHY2010CA89396

PATIENT
  Sex: Male

DRUGS (2)
  1. SANDOSTATIN LAR [Suspect]
     Indication: CARCINOID TUMOUR
     Dosage: 20 MG, QMO
     Route: 030
     Dates: start: 20101223
  2. SANDOSTATIN LAR [Suspect]
     Dosage: 30 MG, QMO
     Route: 030
     Dates: end: 20120509

REACTIONS (6)
  - DEMENTIA [None]
  - MOBILITY DECREASED [None]
  - DEHYDRATION [None]
  - DEATH [None]
  - DEMENTIA ALZHEIMER'S TYPE [None]
  - BLOOD PRESSURE INCREASED [None]
